FAERS Safety Report 12927611 (Version 1)
Quarter: 2016Q4

REPORT INFORMATION
  Report Type: Spontaneous
  Country: US (occurrence: US)
  Receive Date: 20161109
  Receipt Date: 20161109
  Transmission Date: 20170207
  Serious: No
  Sender: FDA-Public Use
  Company Number: None

PATIENT
  Age: 36 Year
  Sex: Female

DRUGS (1)
  1. ALUMINUM ZIRCONIUM TETRACHLOROHYDREX GLY. [Suspect]
     Active Substance: ALUMINUM ZIRCONIUM TETRACHLOROHYDREX GLY
     Indication: HYPERHIDROSIS
     Route: 061
     Dates: end: 20161026

REACTIONS (5)
  - Fatigue [None]
  - Swelling [None]
  - Asthenia [None]
  - Product formulation issue [None]
  - Rash [None]
